FAERS Safety Report 13129327 (Version 1)
Quarter: 2017Q1

REPORT INFORMATION
  Report Type: Spontaneous
  Country: US (occurrence: US)
  Receive Date: 20170118
  Receipt Date: 20170118
  Transmission Date: 20170428
  Serious: Yes (Hospitalization)
  Sender: FDA-Public Use
  Company Number: None

PATIENT
  Age: 77 Year
  Sex: Male
  Weight: 71.7 kg

DRUGS (1)
  1. BRILINTA [Suspect]
     Active Substance: TICAGRELOR
     Indication: STENT PLACEMENT
     Dosage: 90 MG 2 TIMES DAILY ORAL
     Route: 048
     Dates: start: 20161122

REACTIONS (2)
  - Diarrhoea [None]
  - Angioedema [None]

NARRATIVE: CASE EVENT DATE: 20161220
